FAERS Safety Report 21251351 (Version 1)
Quarter: 2022Q3

REPORT INFORMATION
  Report Type: Spontaneous
  Country: US (occurrence: US)
  Receive Date: 20220825
  Receipt Date: 20220825
  Transmission Date: 20221027
  Serious: No
  Sender: FDA-Public Use
  Company Number: US-ORGANON-O2207USA002395

PATIENT
  Age: 15 Year
  Sex: Male

DRUGS (20)
  1. SINEMET [Suspect]
     Active Substance: CARBIDOPA\LEVODOPA
     Indication: Dystonia
     Dosage: UNK
     Route: 048
     Dates: start: 201606, end: 201812
  2. BACLOFEN [Concomitant]
     Active Substance: BACLOFEN
     Indication: Dystonia
     Dosage: 437.9 MCG/DAY
     Dates: start: 201606
  3. BACLOFEN [Concomitant]
     Active Substance: BACLOFEN
     Dosage: 745.2 MCG/DAY
  4. BACLOFEN [Concomitant]
     Active Substance: BACLOFEN
     Dosage: 819.72 MCG/DAY
     Dates: start: 201812
  5. BACLOFEN [Concomitant]
     Active Substance: BACLOFEN
     Dosage: 1100 MCG/DAY
     Route: 008
     Dates: start: 202001
  6. BACLOFEN [Concomitant]
     Active Substance: BACLOFEN
     Dosage: 100MCG/DAY
     Route: 008
     Dates: start: 202003
  7. BACLOFEN [Concomitant]
     Active Substance: BACLOFEN
     Dosage: 100MCG/DAY
     Route: 037
     Dates: start: 202003
  8. BACLOFEN [Concomitant]
     Active Substance: BACLOFEN
     Dosage: 275MCG/DAY
     Route: 037
     Dates: start: 202003
  9. BACLOFEN [Concomitant]
     Active Substance: BACLOFEN
     Dosage: 375.4 MCG/DAY
     Route: 037
     Dates: start: 202004
  10. BACLOFEN [Concomitant]
     Active Substance: BACLOFEN
     Dosage: DOSING WAS UP-TITRATED
     Route: 037
     Dates: start: 2020
  11. BACLOFEN [Concomitant]
     Active Substance: BACLOFEN
     Dosage: 230.2 MCG/DAY
     Route: 037
     Dates: start: 202007
  12. BACLOFEN [Concomitant]
     Active Substance: BACLOFEN
     Dosage: 253.2 MCG/DAY
     Route: 037
     Dates: start: 202007
  13. BACLOFEN [Concomitant]
     Active Substance: BACLOFEN
     Dosage: 278.1 MCG/DAY
     Route: 037
     Dates: start: 202007
  14. BACLOFEN [Concomitant]
     Active Substance: BACLOFEN
     Dosage: PUMP WAS DOWN-TITRATED 5-10% EVERY COUPLE OF DAYS
     Route: 037
     Dates: start: 2020
  15. BACLOFEN [Concomitant]
     Active Substance: BACLOFEN
     Dosage: 178.2 MCG/DAY
     Route: 037
     Dates: start: 202008
  16. BACLOFEN [Concomitant]
     Active Substance: BACLOFEN
     Dosage: CONTINUED DOWN-TITRATION
     Route: 037
     Dates: start: 2020
  17. BACLOFEN [Concomitant]
     Active Substance: BACLOFEN
     Dosage: 150 MCG/DAY
     Route: 037
     Dates: start: 202010
  18. BACLOFEN [Concomitant]
     Active Substance: BACLOFEN
     Indication: Dystonia
     Dosage: UNK
     Route: 048
     Dates: start: 2016
  19. BOTULINUM TOXIN NOS [Concomitant]
     Active Substance: BOTULINUM TOXIN NOS
     Indication: Dystonia
     Dosage: UNK
     Dates: start: 2016
  20. BOTULINUM TOXIN NOS [Concomitant]
     Active Substance: BOTULINUM TOXIN NOS
     Dosage: RECEIVED AS NEEDED
     Dates: start: 202010

REACTIONS (3)
  - Depressed mood [Unknown]
  - Product use in unapproved indication [Unknown]
  - Product use issue [Unknown]

NARRATIVE: CASE EVENT DATE: 20160601
